FAERS Safety Report 12633343 (Version 2)
Quarter: 2016Q3

REPORT INFORMATION
  Report Type: Spontaneous
  Country: US (occurrence: US)
  Receive Date: 20160808
  Receipt Date: 20160808
  Transmission Date: 20161109
  Serious: No
  Sender: FDA-Public Use
  Company Number: US-BEH-2016060655

PATIENT
  Sex: Male
  Weight: 32 kg

DRUGS (29)
  1. METADATE ER [Concomitant]
     Active Substance: METHYLPHENIDATE HYDROCHLORIDE
  2. PULMICORT TURBUHALER [Concomitant]
     Active Substance: BUDESONIDE
  3. BACTRIM DS [Concomitant]
     Active Substance: SULFAMETHOXAZOLE\TRIMETHOPRIM
  4. XYZAL [Concomitant]
     Active Substance: LEVOCETIRIZINE DIHYDROCHLORIDE
  5. SILVADENE [Concomitant]
     Active Substance: SILVER SULFADIAZINE
  6. HIZENTRA [Suspect]
     Active Substance: HUMAN IMMUNOGLOBULIN G
     Dosage: 4 G 20 ML VIALS
  7. MOTRIN [Suspect]
     Active Substance: IBUPROFEN
  8. RETIN-A [Concomitant]
     Active Substance: TRETINOIN
  9. LAMICTAL [Concomitant]
     Active Substance: LAMOTRIGINE
  10. PREVACID [Concomitant]
     Active Substance: LANSOPRAZOLE
  11. HIZENTRA [Suspect]
     Active Substance: HUMAN IMMUNOGLOBULIN G
     Indication: SELECTIVE IGG SUBCLASS DEFICIENCY
     Route: 058
  12. BACTROBAN NASAL OINT [Concomitant]
  13. PATANASE [Concomitant]
     Active Substance: OLOPATADINE HYDROCHLORIDE
  14. DOXEPIN [Concomitant]
     Active Substance: DOXEPIN
  15. VITAMIN D2 [Concomitant]
     Active Substance: ERGOCALCIFEROL
  16. DIASTAT ACUDIAL [Concomitant]
     Active Substance: DIAZEPAM
  17. VITAMIN C [Concomitant]
     Active Substance: ASCORBIC ACID
  18. HYDROXYZINE [Concomitant]
     Active Substance: HYDROXYZINE\HYDROXYZINE HYDROCHLORIDE
  19. EPIPEN [Concomitant]
     Active Substance: EPINEPHRINE
  20. CENTRUM FLAVOR BURST KIDS CHEW [Concomitant]
  21. ZOFRAN [Concomitant]
     Active Substance: ONDANSETRON HYDROCHLORIDE
  22. HIZENTRA [Suspect]
     Active Substance: HUMAN IMMUNOGLOBULIN G
     Dosage: 1 G 5 ML VIALS
  23. XOPENEX HFA [Concomitant]
     Active Substance: LEVALBUTEROL TARTRATE
  24. OMNARIS [Concomitant]
     Active Substance: CICLESONIDE
  25. LEVOCETIRIZINE DIHIDROCHLORIDE [Concomitant]
  26. DIPHENHYDRAMINE. [Concomitant]
     Active Substance: DIPHENHYDRAMINE
  27. ADVAIR HFA [Concomitant]
     Active Substance: FLUTICASONE PROPIONATE\SALMETEROL XINAFOATE
  28. LACTULOSE. [Concomitant]
     Active Substance: LACTULOSE
  29. PROTOPIC OINT [Concomitant]

REACTIONS (1)
  - Injection site haemorrhage [Unknown]
